FAERS Safety Report 15459700 (Version 2)
Quarter: 2018Q4

REPORT INFORMATION
  Report Type: Spontaneous
  Country: PT (occurrence: PT)
  Receive Date: 20181003
  Receipt Date: 20181109
  Transmission Date: 20190204
  Serious: Yes (Hospitalization, Other)
  Sender: FDA-Public Use
  Company Number: PT-TEVA-2018-PT-958830

PATIENT
  Age: 47 Year
  Sex: Female

DRUGS (3)
  1. AMOXICILLIN - CLAVULANATE POTASSIUM USP, 875MG/125MG [Suspect]
     Active Substance: AMOXICILLIN\CLAVULANATE POTASSIUM
     Indication: TONSILLITIS BACTERIAL
  2. PARACETAMOL [Concomitant]
     Active Substance: ACETAMINOPHEN
  3. NIMESULIDE [Concomitant]
     Active Substance: NIMESULIDE

REACTIONS (5)
  - Toxic skin eruption [Recovered/Resolved]
  - Pustular psoriasis [Recovered/Resolved with Sequelae]
  - Rash generalised [Recovered/Resolved]
  - Pyrexia [Recovered/Resolved]
  - Tonsillar exudate [Recovered/Resolved]
